FAERS Safety Report 22260973 (Version 4)
Quarter: 2023Q2

REPORT INFORMATION
  Report Type: Spontaneous
  Country: RO (occurrence: RO)
  Receive Date: 20230427
  Receipt Date: 20230614
  Transmission Date: 20230721
  Serious: Yes (Other)
  Sender: FDA-Public Use
  Company Number: RO-TEVA-2023-RO-2875778

PATIENT
  Age: 66 Year
  Sex: Male

DRUGS (15)
  1. GEMCITABINE [Suspect]
     Active Substance: GEMCITABINE
     Indication: Squamous cell carcinoma of head and neck
     Dosage: UNK, 2ND LINECHEMOTHERAPY IN THE GEMCITABINE
     Route: 065
     Dates: start: 2018
  2. DOCETAXEL [Suspect]
     Active Substance: DOCETAXEL
     Indication: Squamous cell carcinoma of head and neck
     Dosage: CYCLIC (FIRST SEQUENCE OF POLY-CHEMOTHERAPY)
     Route: 065
     Dates: start: 2016
  3. DOCETAXEL [Suspect]
     Active Substance: DOCETAXEL
     Dosage: CYCLIC (TWO CHEMOTHERAPY CYCLES)
     Route: 065
     Dates: start: 201606
  4. FLUOROURACIL [Suspect]
     Active Substance: FLUOROURACIL
     Indication: Squamous cell carcinoma of head and neck
     Dosage: CYCLIC (6TH-8TH TPF CHEMOTHERAPY CYCLES)
     Route: 065
     Dates: start: 201711, end: 201802
  5. FLUOROURACIL [Suspect]
     Active Substance: FLUOROURACIL
     Dosage: CYCLIC (RECHALLENGE OF PLATINUM BASE CHEMO)
     Route: 065
  6. FLUOROURACIL [Suspect]
     Active Substance: FLUOROURACIL
     Dosage: CYCLIC (SEQUENCE OF POLY-CHEMOTHERAPY-TPF)
     Route: 065
  7. CARBOPLATIN [Suspect]
     Active Substance: CARBOPLATIN
     Indication: Squamous cell carcinoma of head and neck
     Dosage: CYCLIC (FIRST SEQUENCE OF POLY-CHEMOTHERAPY)
     Route: 065
     Dates: start: 2016
  8. CARBOPLATIN [Suspect]
     Active Substance: CARBOPLATIN
     Dosage: CYCLIC(RECHALLENGE OF PLATINUM BASE CHEMOTH)
     Route: 065
     Dates: start: 201606
  9. CARBOPLATIN [Suspect]
     Active Substance: CARBOPLATIN
     Dosage: 2ND LINECHEMOTHERAPY IN THE GEMCITABINE
     Route: 065
     Dates: start: 2018, end: 201811
  10. CARBOPLATIN [Suspect]
     Active Substance: CARBOPLATIN
     Dosage: UNK, 2 CYCLES
     Route: 065
  11. ERBITUX [Suspect]
     Active Substance: CETUXIMAB
     Indication: Squamous cell carcinoma of head and neck
     Dosage: UNK, CYCLIC
     Route: 065
     Dates: start: 201701
  12. ERBITUX [Suspect]
     Active Substance: CETUXIMAB
     Dosage: UNK, CYCLIC
     Route: 065
     Dates: start: 201711, end: 201802
  13. ERBITUX [Suspect]
     Active Substance: CETUXIMAB
     Dosage: CYCLIC (RECHALLENGE OF PLATINUM BASE CHEMOTH)
     Route: 065
  14. CAPECITABINE [Suspect]
     Active Substance: CAPECITABINE
     Indication: Squamous cell carcinoma of head and neck
     Dosage: CYCLIC (FIRST SEQUENCE OF POLY-CHEMOTHERAPY)
     Route: 065
     Dates: start: 2016
  15. CAPECITABINE [Suspect]
     Active Substance: CAPECITABINE
     Dosage: UNK, 2 CYCLES
     Route: 065
     Dates: start: 201606

REACTIONS (14)
  - Leukopenia [Unknown]
  - Epistaxis [Unknown]
  - Odynophagia [Unknown]
  - Fatigue [Unknown]
  - Asthenia [Unknown]
  - Malignant neoplasm progression [Unknown]
  - Squamous cell carcinoma of head and neck [Unknown]
  - Disease progression [Unknown]
  - Rash [Unknown]
  - Nocturia [Unknown]
  - Nasal obstruction [Unknown]
  - Dysphonia [Unknown]
  - Rhinorrhoea [Unknown]
  - Product use in unapproved indication [Recovered/Resolved]

NARRATIVE: CASE EVENT DATE: 20160801
